FAERS Safety Report 6711631-8 (Version None)
Quarter: 2010Q2

REPORT INFORMATION
  Report Type: 
  Country: None (occurrence: None)
  Receive Date: 20100505
  Receipt Date: 20100426
  Transmission Date: 20101027
  Serious: Yes (Other)
  Sender: FDA-Public Use
  Company Number: US-NOVOPROD-307717

PATIENT
  Sex: Female
  Weight: 81.633 kg

DRUGS (2)
  1. VAGIFEM LOW DOSE [Suspect]
     Indication: VULVOVAGINAL DRYNESS
     Dosage: 10 UG, QW
     Route: 067
     Dates: start: 20100401
  2. PRILOSEC [Concomitant]
     Indication: GASTROOESOPHAGEAL REFLUX DISEASE
     Dosage: 20 MG, QD
     Route: 048

REACTIONS (2)
  - BACK PAIN [None]
  - MUSCLE SPASMS [None]
